FAERS Safety Report 18348338 (Version 1)
Quarter: 2020Q4

REPORT INFORMATION
  Report Type: Spontaneous
  Country: US (occurrence: US)
  Receive Date: 20201005
  Receipt Date: 20201005
  Transmission Date: 20210114
  Serious: Yes (Other)
  Sender: FDA-Public Use
  Company Number: None

PATIENT
  Age: 57 Year
  Sex: Female
  Weight: 81 kg

DRUGS (2)
  1. ROSUVASTATIN. [Concomitant]
     Active Substance: ROSUVASTATIN
     Dates: start: 20200808, end: 20200928
  2. ROSUVASTATIN. [Suspect]
     Active Substance: ROSUVASTATIN

REACTIONS (3)
  - Pruritus [None]
  - Malaise [None]
  - Pyrexia [None]
